FAERS Safety Report 5165253-3 (Version None)
Quarter: 2006Q4

REPORT INFORMATION
  Report Type: 
  Country: None (occurrence: None)
  Receive Date: 20061124
  Receipt Date: 20061114
  Transmission Date: 20070319
  Serious: Yes (Other)
  Sender: FDA-Public Use
  Company Number: 2006141334

PATIENT
  Age: 58 Year
  Sex: Male

DRUGS (4)
  1. ZYVOX [Suspect]
     Indication: ENTEROCOCCAL SEPSIS
     Dosage: 400 MG, INTRAVENOUS
     Route: 042
     Dates: start: 20061107, end: 20061111
  2. PAZUCROSS (PAZUFLOXACIN) [Suspect]
     Indication: ENTEROCOCCAL SEPSIS
     Dosage: INTRAVENOUS
     Route: 042
     Dates: start: 20061026
  3. AMBISOME [Suspect]
     Indication: FUNGAEMIA
     Dosage: INTRAVENOUS
     Dates: start: 20061001, end: 20061107
  4. MICAFUNGIN (MICAFUNGIN) [Suspect]
     Indication: FUNGAEMIA
     Dosage: INTRAVENOUS
     Route: 042
     Dates: start: 20061107

REACTIONS (1)
  - DEAFNESS [None]
